FAERS Safety Report 6208430-2 (Version None)
Quarter: 2009Q2

REPORT INFORMATION
  Report Type: 
  Country: None (occurrence: None)
  Receive Date: 20090529
  Receipt Date: 20090526
  Transmission Date: 20091009
  Serious: No
  Sender: FDA-Public Use
  Company Number: US-JNJFOC-20090506433

PATIENT
  Sex: Female
  Weight: 96.16 kg

DRUGS (3)
  1. DURAGESIC-100 [Suspect]
     Dosage: 25 UG/HR
     Route: 062
  2. DURAGESIC-100 [Suspect]
     Indication: PAIN
     Route: 062
  3. PERCOCET [Concomitant]
     Indication: PAIN
     Dosage: 5-325 MG AS NEEDED
     Route: 048

REACTIONS (1)
  - WRONG TECHNIQUE IN DRUG USAGE PROCESS [None]
